FAERS Safety Report 7356987-0 (Version None)
Quarter: 2011Q1

REPORT INFORMATION
  Report Type: 
  Country: None (occurrence: None)
  Receive Date: 20110317
  Receipt Date: 20110308
  Transmission Date: 20110831
  Serious: No
  Sender: FDA-Public Use
  Company Number: US-BIOGENIDEC-2011BI009007

PATIENT
  Age: 65 Year
  Sex: Female

DRUGS (2)
  1. ROCEPHIN [Concomitant]
     Indication: LYME DISEASE
  2. AVONEX [Suspect]
     Indication: MULTIPLE SCLEROSIS
     Route: 030
     Dates: start: 20100513

REACTIONS (5)
  - HYPOAESTHESIA [None]
  - ABDOMINAL DISCOMFORT [None]
  - INFLUENZA LIKE ILLNESS [None]
  - FATIGUE [None]
  - HEADACHE [None]
